FAERS Safety Report 6591847-4 (Version None)
Quarter: 2010Q1

REPORT INFORMATION
  Report Type: 
  Country: None (occurrence: None)
  Receive Date: 20100221
  Receipt Date: 20090617
  Transmission Date: 20100710
  Serious: No
  Sender: FDA-Public Use
  Company Number: US-ALLERGAN-0908432US

PATIENT
  Sex: Female

DRUGS (6)
  1. BOTOX COSMETIC [Suspect]
     Indication: SKIN WRINKLING
     Dosage: 60 UNITS, SINGLE
     Route: 030
     Dates: start: 20090605, end: 20090605
  2. WELLBUTRIN [Concomitant]
  3. CLARINEX [Concomitant]
  4. NEURONTIN [Concomitant]
  5. ARIMIDEX [Concomitant]
  6. ZOLOFT [Concomitant]

REACTIONS (2)
  - EYELID PTOSIS [None]
  - FACIAL PARESIS [None]
